FAERS Safety Report 10900669 (Version 1)
Quarter: 2015Q1

REPORT INFORMATION
  Report Type: Spontaneous
  Country: US (occurrence: None)
  Receive Date: 20150303
  Receipt Date: 20150303
  Transmission Date: 20150721
  Serious: Yes (Hospitalization)
  Sender: FDA-Public Use
  Company Number: None

PATIENT
  Age: 57 Year
  Sex: Male

DRUGS (5)
  1. SPRYCEL [Suspect]
     Active Substance: DASATINIB
     Indication: BRAIN NEOPLASM MALIGNANT
     Dosage: 1 TABLET QD ORAL
     Route: 048
     Dates: start: 20141203, end: 20150301
  2. VALPROIC ACID. [Concomitant]
     Active Substance: VALPROIC ACID
  3. KEPPRA [Concomitant]
     Active Substance: LEVETIRACETAM
  4. AFINITOR [Suspect]
     Active Substance: EVEROLIMUS
  5. VOTRIENT [Concomitant]
     Active Substance: PAZOPANIB HYDROCHLORIDE

REACTIONS (2)
  - Therapy cessation [None]
  - Hospitalisation [None]

NARRATIVE: CASE EVENT DATE: 20150301
